FAERS Safety Report 19649953 (Version 2)
Quarter: 2021Q4

REPORT INFORMATION
  Report Type: Report from Study
  Country: BR (occurrence: BR)
  Receive Date: 20210803
  Receipt Date: 20211210
  Transmission Date: 20220303
  Serious: Yes (Hospitalization, Other)
  Sender: FDA-Public Use
  Company Number: BR-JNJFOC-20210762346

PATIENT
  Age: 45 Year
  Sex: Female

DRUGS (1)
  1. SIMPONI [Suspect]
     Active Substance: GOLIMUMAB
     Indication: Psoriatic arthropathy
     Dosage: START DATE: MARCH
     Route: 058
     Dates: start: 20210608

REACTIONS (4)
  - COVID-19 [Unknown]
  - Psoriatic arthropathy [Unknown]
  - Conjunctivitis [Unknown]
  - Memory impairment [Unknown]
